FAERS Safety Report 8992879 (Version 3)
Quarter: 2013Q2

REPORT INFORMATION
  Report Type: Report from Study
  Country: FR (occurrence: FR)
  Receive Date: 20130102
  Receipt Date: 20130612
  Transmission Date: 20140414
  Serious: Yes (Hospitalization)
  Sender: FDA-Public Use
  Company Number: FR-UCBSA-068091

PATIENT
  Age: 60 Year
  Sex: Female
  Weight: 60 kg

DRUGS (11)
  1. CIMZIA [Suspect]
     Indication: RHEUMATOID ARTHRITIS
     Route: 058
     Dates: start: 20120613, end: 2012
  2. CIMZIA [Suspect]
     Indication: RHEUMATOID ARTHRITIS
     Route: 058
     Dates: start: 2012, end: 20121128
  3. METOJECT [Suspect]
     Indication: RHEUMATOID ARTHRITIS
     Route: 058
     Dates: start: 201112, end: 20121128
  4. METOJECT [Suspect]
     Indication: RHEUMATOID ARTHRITIS
     Route: 058
     Dates: start: 201109, end: 201112
  5. CEBUTIDE [Concomitant]
     Indication: RHEUMATOID ARTHRITIS
     Dosage: DOSE:UNKNOWN
     Dates: start: 2002
  6. CORTANCYL [Concomitant]
     Indication: RHEUMATOID ARTHRITIS
     Route: 048
     Dates: start: 201112
  7. AMOXICILLIN [Concomitant]
     Indication: BRONCHITIS
     Route: 048
     Dates: start: 20120830, end: 20120905
  8. AMOXICILLIN [Concomitant]
     Indication: BRONCHITIS
     Route: 048
     Dates: start: 20121130, end: 20121204
  9. AUGMENTIN [Concomitant]
     Indication: BRONCHITIS
     Dates: start: 20120906, end: 20120912
  10. SPECIAFOLDINE [Concomitant]
     Indication: FOLATE DEFICIENCY
     Dates: start: 20120613, end: 20121231
  11. LEVOTHYROX [Concomitant]
     Indication: HYPOTHYROIDISM
     Dosage: 100MCG DAILY
     Dates: start: 2002

REACTIONS (2)
  - Noninfective bronchitis [Recovered/Resolved]
  - Depression [Not Recovered/Not Resolved]
